FAERS Safety Report 6202524-3 (Version None)
Quarter: 2009Q2

REPORT INFORMATION
  Report Type: 
  Country: None (occurrence: None)
  Receive Date: 20090526
  Receipt Date: 20090518
  Transmission Date: 20091009
  Serious: Yes (Hospitalization)
  Sender: FDA-Public Use
  Company Number: US-ABBOTT-09P-163-0574532-00

PATIENT
  Sex: Female
  Weight: 49.94 kg

DRUGS (3)
  1. HUMIRA [Suspect]
     Indication: CROHN'S DISEASE
     Route: 058
     Dates: start: 20090302
  2. PREDNISONE [Concomitant]
     Indication: CROHN'S DISEASE
     Dosage: UNKNOWN
     Dates: start: 20090227, end: 20090330
  3. PREDNISONE [Concomitant]
     Dosage: TAPERING DOWN
     Dates: start: 20090330

REACTIONS (3)
  - ANOREXIA [None]
  - HAEMORRHAGE [None]
  - MALAISE [None]
